FAERS Safety Report 15848255 (Version 2)
Quarter: 2019Q2

REPORT INFORMATION
  Report Type: Spontaneous
  Country: US (occurrence: US)
  Receive Date: 20190121
  Receipt Date: 20190416
  Transmission Date: 20190711
  Serious: No
  Sender: FDA-Public Use
  Company Number: US-PFIZER INC-2018537012

PATIENT
  Age: 61 Year
  Sex: Female
  Weight: 76.19 kg

DRUGS (4)
  1. TAXOTERE [Suspect]
     Active Substance: DOCETAXEL
     Indication: BREAST CANCER
     Dosage: UNK
     Dates: start: 20120315, end: 20120726
  2. DOCETAXEL. [Suspect]
     Active Substance: DOCETAXEL
     Dosage: 143 MG, CYCLIC (138 MG - 143 MG EVERY THREE WEEKS, 06 CYCLES)
     Dates: start: 20120315, end: 20120726
  3. DOCETAXEL. [Suspect]
     Active Substance: DOCETAXEL
     Indication: BREAST CANCER
     Dosage: 138 MG, CYCLIC (138 MG - 143 MG EVERY THREE WEEKS, 06 CYCLES)
     Dates: start: 20120315, end: 20120726
  4. PARAPLATIN [Concomitant]
     Active Substance: CARBOPLATIN

REACTIONS (1)
  - Alopecia [Unknown]

NARRATIVE: CASE EVENT DATE: 201301
